FAERS Safety Report 15165404 (Version 2)
Quarter: 2018Q3

REPORT INFORMATION
  Report Type: Spontaneous
  Country: AU (occurrence: AU)
  Receive Date: 20180719
  Receipt Date: 20180808
  Transmission Date: 20181010
  Serious: Yes (Other)
  Sender: FDA-Public Use
  Company Number: AU-AMGEN-AUSSP2018096161

PATIENT
  Age: 45 Year
  Sex: Female
  Weight: 61 kg

DRUGS (1)
  1. PROLIA [Suspect]
     Active Substance: DENOSUMAB
     Indication: PRODUCT USED FOR UNKNOWN INDICATION
     Dosage: UNK
     Route: 065

REACTIONS (8)
  - Nausea [Unknown]
  - Malaise [Unknown]
  - Impaired work ability [Unknown]
  - Hip arthroplasty [Unknown]
  - Arthralgia [Unknown]
  - Pain in jaw [Unknown]
  - Fatigue [Unknown]
  - Back pain [Unknown]
